FAERS Safety Report 4708697-3 (Version None)
Quarter: 2005Q3

REPORT INFORMATION
  Report Type: 
  Country: None (occurrence: None)
  Receive Date: 20050707
  Receipt Date: 20041015
  Transmission Date: 20060218
  Serious: Yes (Other)
  Sender: FDA-Public Use
  Company Number: PHNU2004DE03533

PATIENT
  Sex: Female

DRUGS (1)
  1. ESTRADERM [Suspect]
     Route: 062
     Dates: start: 19920101

REACTIONS (4)
  - DRUG INEFFECTIVE [None]
  - HOT FLUSH [None]
  - HYPERHIDROSIS [None]
  - PNEUMONIA [None]
